FAERS Safety Report 17868342 (Version 1)
Quarter: 2020Q2

REPORT INFORMATION
  Report Type: Spontaneous
  Country: CA (occurrence: CA)
  Receive Date: 20200606
  Receipt Date: 20200606
  Transmission Date: 20200714
  Serious: Yes (Other)
  Sender: FDA-Public Use
  Company Number: CA-ROCHE-2612433

PATIENT
  Sex: Male
  Weight: 57 kg

DRUGS (14)
  1. FENTANYL. [Suspect]
     Active Substance: FENTANYL
     Indication: PAIN
     Route: 065
  2. HYDROMORPHONE [Suspect]
     Active Substance: HYDROMORPHONE
     Indication: PAIN
     Route: 048
  3. FOLIC ACID. [Concomitant]
     Active Substance: FOLIC ACID
  4. PANTOPRAZOLE [Concomitant]
     Active Substance: PANTOPRAZOLE
  5. BEVACIZUMAB. [Suspect]
     Active Substance: BEVACIZUMAB
     Indication: LUNG NEOPLASM MALIGNANT
     Route: 065
  6. OXYCODONE [Concomitant]
     Active Substance: OXYCODONE
  7. PREGABALIN. [Concomitant]
     Active Substance: PREGABALIN
  8. PROCHLORPERAZINE. [Concomitant]
     Active Substance: PROCHLORPERAZINE
  9. SENOKOT [Concomitant]
     Active Substance: SENNOSIDES
  10. DEXAMETHASONE. [Concomitant]
     Active Substance: DEXAMETHASONE
  11. LACTULOSE. [Concomitant]
     Active Substance: LACTULOSE
  12. ACETYLSALICYLIC ACID [Concomitant]
     Active Substance: ASPIRIN
  13. CHLORHEXIDINE [Concomitant]
     Active Substance: CHLORHEXIDINE
  14. COLACE [Concomitant]
     Active Substance: DOCUSATE SODIUM

REACTIONS (10)
  - Tooth loss [Not Recovered/Not Resolved]
  - Decubitus ulcer [Not Recovered/Not Resolved]
  - Dysphagia [Not Recovered/Not Resolved]
  - Off label use [Not Recovered/Not Resolved]
  - Tooth disorder [Not Recovered/Not Resolved]
  - Loss of personal independence in daily activities [Not Recovered/Not Resolved]
  - Weight decreased [Not Recovered/Not Resolved]
  - Decreased appetite [Not Recovered/Not Resolved]
  - Drug ineffective [Not Recovered/Not Resolved]
  - Pain [Not Recovered/Not Resolved]
